FAERS Safety Report 10482207 (Version 1)
Quarter: 2014Q3

REPORT INFORMATION
  Report Type: Spontaneous
  Country: US (occurrence: US)
  Receive Date: 20140929
  Receipt Date: 20140929
  Transmission Date: 20150326
  Serious: No
  Sender: FDA-Public Use
  Company Number: US-BAYER-2014-141332

PATIENT
  Age: 47 Year
  Sex: Female

DRUGS (1)
  1. MIRENA [Suspect]
     Active Substance: LEVONORGESTREL
     Indication: CONTRACEPTION
     Dosage: 20 MCG/24HR, CONT
     Route: 015
     Dates: start: 20140821

REACTIONS (7)
  - Dysphagia [None]
  - Sensation of foreign body [None]
  - Respiratory rate increased [None]
  - Choking sensation [None]
  - Vaginal haemorrhage [None]
  - Menstruation delayed [None]
  - Dry mouth [None]
